FAERS Safety Report 18873949 (Version 2)
Quarter: 2021Q2

REPORT INFORMATION
  Report Type: Spontaneous
  Country: US (occurrence: US)
  Receive Date: 20210210
  Receipt Date: 20210625
  Transmission Date: 20210717
  Serious: Yes (Other)
  Sender: FDA-Public Use
  Company Number: US-GILEAD-2021-0515533

PATIENT
  Sex: Female
  Weight: 73.48 kg

DRUGS (54)
  1. STRIBILD [Suspect]
     Active Substance: COBICISTAT\ELVITEGRAVIR\EMTRICITABINE\TENOFOVIR DISOPROXIL FUMARATE
     Dosage: UNK
     Route: 048
     Dates: start: 20140903, end: 20150520
  2. COMBIVIR [Concomitant]
     Active Substance: LAMIVUDINE\ZIDOVUDINE
  3. BUPROPION. [Concomitant]
     Active Substance: BUPROPION
  4. DESCOVY [Concomitant]
     Active Substance: EMTRICITABINE\TENOFOVIR ALAFENAMIDE FUMARATE
  5. TIVICAY [Concomitant]
     Active Substance: DOLUTEGRAVIR SODIUM
  6. ACYCLOVIR [ACICLOVIR SODIUM] [Concomitant]
     Active Substance: ACYCLOVIR
  7. PRAVASTATIN. [Concomitant]
     Active Substance: PRAVASTATIN
  8. SPIRIVA [Concomitant]
     Active Substance: TIOTROPIUM BROMIDE MONOHYDRATE
  9. TRAZODONE [Concomitant]
     Active Substance: TRAZODONE HYDROCHLORIDE
  10. ALBUTEROL [SALBUTAMOL] [Concomitant]
     Active Substance: ALBUTEROL
  11. METHOCARBAMOL. [Concomitant]
     Active Substance: METHOCARBAMOL
  12. OMEPRAZOLE. [Concomitant]
     Active Substance: OMEPRAZOLE
  13. PAROXETINE. [Concomitant]
     Active Substance: PAROXETINE
  14. POTASSIUM [Concomitant]
     Active Substance: POTASSIUM
  15. PREDNISONE. [Concomitant]
     Active Substance: PREDNISONE
  16. PROMETHAZINE [Concomitant]
     Active Substance: PROMETHAZINE HYDROCHLORIDE
  17. SHINGRIX [Concomitant]
     Active Substance: RECOMBINANT VARICELLA ZOSTER VIRUS (VZV) GLYCOPROTEIN E
  18. SULFASALAZINE. [Concomitant]
     Active Substance: SULFASALAZINE
  19. TRILIPIX [Concomitant]
     Active Substance: FENOFIBRIC ACID
  20. BIKTARVY [Concomitant]
     Active Substance: BICTEGRAVIR SODIUM\EMTRICITABINE\TENOFOVIR ALAFENAMIDE FUMARATE
  21. HYDROCHLOROTHIAZIDE. [Concomitant]
     Active Substance: HYDROCHLOROTHIAZIDE
  22. LAMIVUDINE. [Concomitant]
     Active Substance: LAMIVUDINE
  23. LEVALBUTEROL [LEVOSALBUTAMOL] [Concomitant]
     Active Substance: LEVALBUTEROL
  24. LORATADINE. [Concomitant]
     Active Substance: LORATADINE
  25. METRONIDAZOLE. [Concomitant]
     Active Substance: METRONIDAZOLE
  26. NITROFURANTOIN. [Concomitant]
     Active Substance: NITROFURANTOIN
  27. PREMARIN [Concomitant]
     Active Substance: ESTROGENS, CONJUGATED
  28. SULFAMETHOXAZOLE [Concomitant]
     Active Substance: SULFAMETHOXAZOLE
  29. CYCLOBENZAPRINE. [Concomitant]
     Active Substance: CYCLOBENZAPRINE
  30. DIFLUNISAL. [Concomitant]
     Active Substance: DIFLUNISAL
  31. DOXYCYCLINE. [Concomitant]
     Active Substance: DOXYCYCLINE
  32. ESTRACE [Concomitant]
     Active Substance: ESTRADIOL
  33. PROAIR HFA [Concomitant]
     Active Substance: ALBUTEROL SULFATE
  34. AK?CON [Concomitant]
     Active Substance: NAPHAZOLINE HYDROCHLORIDE
  35. AMOXICILLIN. [Concomitant]
     Active Substance: AMOXICILLIN
  36. CLOTRIMAZOLE. [Concomitant]
     Active Substance: CLOTRIMAZOLE
  37. STRIBILD [Suspect]
     Active Substance: COBICISTAT\ELVITEGRAVIR\EMTRICITABINE\TENOFOVIR DISOPROXIL FUMARATE
     Indication: HIV INFECTION
     Dosage: UNK
     Route: 048
     Dates: start: 2013
  38. ACCOLATE [Concomitant]
     Active Substance: ZAFIRLUKAST
  39. FLUCONAZOLE. [Concomitant]
     Active Substance: FLUCONAZOLE
  40. LACTULOSE. [Concomitant]
     Active Substance: LACTULOSE
  41. NEXIUM I.V. [Concomitant]
     Active Substance: ESOMEPRAZOLE SODIUM
  42. TRICOR [ADENOSINE] [Concomitant]
     Active Substance: ADENOSINE
  43. XOPENEX [Concomitant]
     Active Substance: LEVALBUTEROL HYDROCHLORIDE
  44. TRUVADA [Suspect]
     Active Substance: EMTRICITABINE\TENOFOVIR DISOPROXIL FUMARATE
     Indication: HIV INFECTION
     Dosage: UNK
     Route: 048
     Dates: start: 2013
  45. STRIBILD [Suspect]
     Active Substance: COBICISTAT\ELVITEGRAVIR\EMTRICITABINE\TENOFOVIR DISOPROXIL FUMARATE
     Dosage: UNK
     Route: 048
     Dates: start: 20150520, end: 201801
  46. KALETRA [Concomitant]
     Active Substance: LOPINAVIR\RITONAVIR
  47. AFLURIA NOS [Concomitant]
     Active Substance: INFLUENZA VIRUS VACCINE TRIVALENT TYPE A+B AFLURIA
  48. AMLODIPINE [Concomitant]
     Active Substance: AMLODIPINE BESYLATE
  49. AZITHROMYCIN ANHYDROUS. [Concomitant]
     Active Substance: AZITHROMYCIN ANHYDROUS
  50. BACLOFEN. [Concomitant]
     Active Substance: BACLOFEN
  51. FAMOTIDINE. [Concomitant]
     Active Substance: FAMOTIDINE
  52. FLUARIX NOS [Concomitant]
     Active Substance: INFLUENZA VIRUS VACCINE
  53. KLOR?CON [Concomitant]
     Active Substance: POTASSIUM CHLORIDE
  54. LOSARTAN. [Concomitant]
     Active Substance: LOSARTAN

REACTIONS (6)
  - Osteoporosis [Not Recovered/Not Resolved]
  - Bone density decreased [Unknown]
  - Anhedonia [Not Recovered/Not Resolved]
  - Anxiety [Not Recovered/Not Resolved]
  - Emotional distress [Not Recovered/Not Resolved]
  - Pain [Not Recovered/Not Resolved]

NARRATIVE: CASE EVENT DATE: 2014
